FAERS Safety Report 8233280-5 (Version None)
Quarter: 2012Q1

REPORT INFORMATION
  Report Type: 
  Country: None (occurrence: None)
  Receive Date: 20120326
  Receipt Date: 20120314
  Transmission Date: 20120608
  Serious: Yes (Life-Threatening, Hospitalization)
  Sender: FDA-Public Use
  Company Number: JP-ELI_LILLY_AND_COMPANY-JP201202006145

PATIENT
  Sex: Male

DRUGS (15)
  1. ENALAPRIL MALEATE [Concomitant]
     Dosage: 2.5 MG, UNK
     Route: 048
     Dates: end: 20120220
  2. SAMSCA [Concomitant]
     Dosage: 15 MG, UNK
     Route: 048
     Dates: start: 20120116, end: 20120220
  3. AMIODARONE HYDROCHLORIDE [Concomitant]
     Indication: CARDIOMYOPATHY
     Dosage: 400 MG, UNK
     Route: 048
     Dates: start: 20120125, end: 20120220
  4. EPLERENONE [Concomitant]
     Dosage: 50 MG, UNK
     Route: 048
     Dates: start: 20110524, end: 20120220
  5. CELECOXIB [Concomitant]
     Dosage: 200 MG, UNK
  6. FLIVAS [Concomitant]
     Dosage: 50 MG, UNK
     Dates: start: 20120124, end: 20120220
  7. ALLOPURINOL [Concomitant]
     Dosage: 100 MG, UNK
     Route: 048
     Dates: end: 20120220
  8. CARVEDILOL [Concomitant]
     Indication: CARDIOMYOPATHY
     Dosage: 5 MG, UNK
     Route: 048
     Dates: end: 20120220
  9. INDAPAMIDE [Concomitant]
     Dosage: 1 MG, UNK
     Route: 048
     Dates: start: 20110503, end: 20120220
  10. LASIX [Concomitant]
     Dosage: 80 MG, UNK
     Route: 048
     Dates: end: 20120220
  11. LENDORMIN [Concomitant]
     Dosage: 0.25 MG, UNK
  12. FORTEO [Suspect]
     Indication: OSTEOPOROSIS
     Dosage: UNK
     Route: 058
     Dates: start: 20120201, end: 20120219
  13. WARFARIN [Concomitant]
     Dosage: 1 MG, UNK
     Route: 048
     Dates: end: 20120220
  14. REBAMIPIDE [Concomitant]
     Dosage: 300 MG, UNK
     Dates: start: 20110125, end: 20120220
  15. RABEPRAZOLE SODIUM [Concomitant]
     Dosage: 10 MG, UNK
     Dates: end: 20120220

REACTIONS (2)
  - RENAL FAILURE ACUTE [None]
  - CARDIAC FAILURE CHRONIC [None]
